FAERS Safety Report 16336070 (Version 2)
Quarter: 2019Q2

REPORT INFORMATION
  Report Type: Spontaneous
  Country: US (occurrence: US)
  Receive Date: 20190521
  Receipt Date: 20190619
  Transmission Date: 20190711
  Serious: No
  Sender: FDA-Public Use
  Company Number: US-ASTRAZENECA-2019SE65055

PATIENT
  Sex: Male

DRUGS (1)
  1. TUDORZA PRESSAIR [Suspect]
     Active Substance: ACLIDINIUM BROMIDE
     Dosage: UNKNOWN400.0UG UNKNOWN
     Route: 055

REACTIONS (4)
  - Product dose omission [Unknown]
  - Device failure [Unknown]
  - Device malfunction [Unknown]
  - Panic attack [Unknown]
